FAERS Safety Report 4835217-5 (Version None)
Quarter: 2005Q4

REPORT INFORMATION
  Report Type: 
  Country: None (occurrence: None)
  Receive Date: 20051122
  Receipt Date: 20051116
  Transmission Date: 20060501
  Serious: Yes (Hospitalization)
  Sender: FDA-Public Use
  Company Number: DK-MERCK-0511DNK00009

PATIENT
  Age: 57 Year
  Sex: Female

DRUGS (2)
  1. VIOXX [Suspect]
     Indication: PAIN IN JAW
     Route: 048
     Dates: start: 20020410, end: 20020830
  2. LEVOTHYROXINE SODIUM [Concomitant]
     Indication: HYPOTHYROIDISM
     Route: 048
     Dates: start: 19880101

REACTIONS (4)
  - CARDIAC DISCOMFORT [None]
  - FATIGUE [None]
  - HYPERHIDROSIS [None]
  - TACHYARRHYTHMIA [None]
